FAERS Safety Report 25060686 (Version 2)
Quarter: 2025Q2

REPORT INFORMATION
  Report Type: Spontaneous
  Country: JP (occurrence: JP)
  Receive Date: 20250310
  Receipt Date: 20250411
  Transmission Date: 20250717
  Serious: Yes (Other)
  Sender: BAYER
  Company Number: JP-BAYER-2025A032773

PATIENT
  Age: 65 Year
  Sex: Male

DRUGS (8)
  1. KERENDIA [Suspect]
     Active Substance: FINERENONE
     Indication: Type 2 diabetes mellitus
     Dosage: DAILY DOSE 10 MG
     Dates: start: 20240620, end: 20240829
  2. KERENDIA [Suspect]
     Active Substance: FINERENONE
     Indication: Chronic kidney disease
     Dosage: DAILY DOSE 10 MG
     Dates: start: 20241101, end: 20250304
  3. OLMESARTAN MEDOXOMIL [Concomitant]
     Active Substance: OLMESARTAN MEDOXOMIL
     Indication: Hypertension
     Dosage: DAILY DOSE 40 MG
     Dates: start: 2019
  4. ROSUVASTATIN CALCIUM [Concomitant]
     Active Substance: ROSUVASTATIN CALCIUM
     Indication: Dyslipidaemia
     Dosage: DAILY DOSE 2.5 MG
     Dates: start: 20210829
  5. AMLODIPINE BESYLATE [Concomitant]
     Active Substance: AMLODIPINE BESYLATE
     Indication: Hypertension
     Dosage: DAILY DOSE 10 MG
     Dates: start: 2019
  6. JARDIANCE [Concomitant]
     Active Substance: EMPAGLIFLOZIN
     Indication: Diabetes mellitus
     Dosage: DAILY DOSE 10 MG
     Dates: start: 2022
  7. INDAPAMIDE [Concomitant]
     Active Substance: INDAPAMIDE
     Indication: Hypertension
     Dosage: DAILY DOSE 1 MG
     Dates: start: 20241205
  8. METFORMIN HYDROCHLORIDE\VILDAGLIPTIN [Concomitant]
     Active Substance: METFORMIN HYDROCHLORIDE\VILDAGLIPTIN
     Indication: Diabetes mellitus
     Dosage: DAILY DOSE 2 DF
     Dates: start: 2019

REACTIONS (5)
  - Acute kidney injury [Unknown]
  - Nephrotic syndrome [Unknown]
  - Oedema [None]
  - Diarrhoea [None]
  - Decreased appetite [None]

NARRATIVE: CASE EVENT DATE: 20241205
